FAERS Safety Report 17707976 (Version 1)
Quarter: 2020Q2

REPORT INFORMATION
  Report Type: Spontaneous
  Country: JP (occurrence: JP)
  Receive Date: 20200425
  Receipt Date: 20200425
  Transmission Date: 20200714
  Serious: Yes (Hospitalization, Other)
  Sender: FDA-Public Use
  Company Number: JP-ROCHE-2590028

PATIENT
  Age: 91 Year
  Sex: Male

DRUGS (1)
  1. TECENTRIQ [Suspect]
     Active Substance: ATEZOLIZUMAB
     Indication: NON-SMALL CELL LUNG CANCER
     Dosage: RECEIVED DOSE ON 23/APR/2019, 14/MAY/2019, 04/JUN/2019, 25/JUN/2019, 16/JUL/2019.
     Route: 041
     Dates: start: 20190402, end: 20190716

REACTIONS (3)
  - Guillain-Barre syndrome [Recovering/Resolving]
  - Myasthenia gravis [Recovering/Resolving]
  - Cerebral infarction [Unknown]

NARRATIVE: CASE EVENT DATE: 20190719
